FAERS Safety Report 9098248 (Version 2)
Quarter: 2013Q1

REPORT INFORMATION
  Report Type: Spontaneous
  Country: JP (occurrence: JP)
  Receive Date: 20130213
  Receipt Date: 20130319
  Transmission Date: 20140127
  Serious: Yes (Death, Other)
  Sender: FDA-Public Use
  Company Number: PHHY2013JP013783

PATIENT
  Age: 66 Year
  Sex: Female

DRUGS (3)
  1. ZOMETA [Suspect]
     Indication: METASTASES TO BONE
     Dosage: 3 MG (PER ADMINISTRATION)
     Route: 041
     Dates: start: 20121108, end: 20121108
  2. ROPION [Concomitant]
     Indication: PROPHYLAXIS
     Dosage: UNK UKN, UNK
  3. CLARITH [Concomitant]
     Dosage: UNK UKN, UNK
     Route: 048

REACTIONS (6)
  - Cardiac failure congestive [Fatal]
  - Altered state of consciousness [Unknown]
  - Renal failure acute [Recovered/Resolved]
  - Anuria [Unknown]
  - Hypocalcaemia [Unknown]
  - Pyrexia [Unknown]
